FAERS Safety Report 8212489-0 (Version None)
Quarter: 2012Q1

REPORT INFORMATION
  Report Type: 
  Country: None (occurrence: None)
  Receive Date: 20120315
  Receipt Date: 20120308
  Transmission Date: 20120608
  Serious: Yes (Life-Threatening, Hospitalization, Disabling, Other)
  Sender: FDA-Public Use
  Company Number: US-GLAXOSMITHKLINE-A0969155A

PATIENT
  Age: 61 Year
  Sex: Male

DRUGS (4)
  1. COUMADIN [Concomitant]
  2. INSULIN [Concomitant]
  3. VOTRIENT [Suspect]
     Indication: RENAL CANCER
     Dosage: 800MG PER DAY
     Route: 048
     Dates: start: 20120210, end: 20120307
  4. MORPHINE [Concomitant]

REACTIONS (3)
  - PNEUMONIA [None]
  - WHITE BLOOD CELL COUNT DECREASED [None]
  - DYSPNOEA [None]
